FAERS Safety Report 9431607 (Version 6)
Quarter: 2013Q4

REPORT INFORMATION
  Report Type: Spontaneous
  Country: US (occurrence: US)
  Receive Date: 20130731
  Receipt Date: 20131104
  Transmission Date: 20140711
  Serious: Yes (Hospitalization)
  Sender: FDA-Public Use
  Company Number: US-BIOGENIDEC-2013BI068467

PATIENT
  Sex: Female

DRUGS (2)
  1. TYSABRI [Suspect]
     Indication: MULTIPLE SCLEROSIS
     Route: 042
     Dates: start: 20080916, end: 20100616
  2. TYSABRI [Suspect]
     Indication: MULTIPLE SCLEROSIS
     Route: 042
     Dates: start: 20111027, end: 20130327

REACTIONS (5)
  - Thrombosis [Recovered/Resolved]
  - Nephrolithiasis [Unknown]
  - Kidney infection [Recovered/Resolved]
  - Bacterial infection [Recovered/Resolved]
  - Stent placement [Unknown]
